FAERS Safety Report 16878805 (Version 1)
Quarter: 2019Q4

REPORT INFORMATION
  Report Type: Spontaneous
  Country: AU (occurrence: AU)
  Receive Date: 20191002
  Receipt Date: 20191002
  Transmission Date: 20200122
  Serious: Yes (Other)
  Sender: FDA-Public Use
  Company Number: AU-ALLERGAN-1939880US

PATIENT
  Sex: Male

DRUGS (1)
  1. GANFORT 0.3/5 [Suspect]
     Active Substance: BIMATOPROST\TIMOLOL
     Indication: PRODUCT USED FOR UNKNOWN INDICATION
     Dosage: UNK
     Dates: end: 201906

REACTIONS (5)
  - Chest discomfort [Unknown]
  - Depression [Unknown]
  - Dyspnoea [Unknown]
  - Pneumonia [Unknown]
  - Amnesia [Unknown]
